FAERS Safety Report 25125196 (Version 1)
Quarter: 2025Q1

REPORT INFORMATION
  Report Type: Spontaneous
  Country: PL (occurrence: PL)
  Receive Date: 20250326
  Receipt Date: 20250326
  Transmission Date: 20250409
  Serious: Yes (Other)
  Sender: TEVA
  Company Number: PL-TEVA-VS-3312194

PATIENT
  Age: 25 Year
  Sex: Male

DRUGS (1)
  1. AJOVY [Suspect]
     Active Substance: FREMANEZUMAB-VFRM
     Indication: Migraine
     Route: 058

REACTIONS (5)
  - Brain fog [Unknown]
  - Loss of personal independence in daily activities [Unknown]
  - Daydreaming [Unknown]
  - Drug ineffective [Unknown]
  - Migraine [Unknown]
